FAERS Safety Report 9799579 (Version 1)
Quarter: 2014Q1

REPORT INFORMATION
  Report Type: Spontaneous
  Country: US (occurrence: US)
  Receive Date: 20140106
  Receipt Date: 20140106
  Transmission Date: 20141002
  Serious: No
  Sender: FDA-Public Use
  Company Number: US-GILEAD-2010-0031346

PATIENT
  Age: 49 Year
  Sex: Male
  Weight: 68.49 kg

DRUGS (24)
  1. LETAIRIS [Suspect]
     Indication: PULMONARY ARTERIAL HYPERTENSION
     Route: 048
     Dates: start: 20100813
  2. ADCIRCA [Concomitant]
  3. LASIX [Concomitant]
  4. CLARITIN [Concomitant]
  5. COMPAZINE [Concomitant]
  6. RANITIDINE [Concomitant]
  7. DRONABINOL [Concomitant]
  8. NEXIUM [Concomitant]
  9. OXYCODONE [Concomitant]
  10. OXYCONTIN [Concomitant]
  11. PERCOCET [Concomitant]
  12. PANCREASE MT 10 EC CAP [Concomitant]
  13. MEPHYTON [Concomitant]
  14. TRAZODONE [Concomitant]
  15. TEMAZEPAM [Concomitant]
  16. ATIVAN [Concomitant]
  17. DIFLUCAN [Concomitant]
  18. ZITHROMAX [Concomitant]
  19. SELZENTRY [Concomitant]
  20. INTELENCE [Concomitant]
  21. POTASSIUM CHLORIDE [Concomitant]
  22. CENTRUM COMPLETE [Concomitant]
  23. BL VITAMIN A [Concomitant]
  24. BL VITAMIN B12 [Concomitant]

REACTIONS (5)
  - Diarrhoea [Unknown]
  - Lethargy [Unknown]
  - Nausea [Unknown]
  - Vomiting [Unknown]
  - Oedema [Unknown]
